FAERS Safety Report 25751029 (Version 1)
Quarter: 2025Q3

REPORT INFORMATION
  Report Type: Spontaneous
  Country: US (occurrence: None)
  Receive Date: 20250830
  Receipt Date: 20250830
  Transmission Date: 20251020
  Serious: Yes (Hospitalization)
  Sender: FDA-CTU
  Company Number: None

PATIENT
  Sex: Female

DRUGS (11)
  1. LENALIDOMIDE [Suspect]
     Active Substance: LENALIDOMIDE
     Indication: Plasma cell myeloma in remission
     Dates: start: 20241114
  2. ALBUTEROL AER HFA [Concomitant]
  3. AMLODIPINE TAB 5MG [Concomitant]
  4. ELIQUIS [Concomitant]
     Active Substance: APIXABAN
  5. LASIX TAB 20MG [Concomitant]
  6. LOPERAMIDE CAP 2MG [Concomitant]
  7. MIRALAX POW 3350 NF [Concomitant]
  8. MULTIVITAMIN TAB ADLT 50+ [Concomitant]
  9. OXYCODONE [Concomitant]
     Active Substance: OXYCODONE
  10. REVLIMID CAP 5MG [Concomitant]
  11. TYLENOL TAB 500MG [Concomitant]

REACTIONS (1)
  - Therapy interrupted [None]
